FAERS Safety Report 6656836-X (Version None)
Quarter: 2010Q1

REPORT INFORMATION
  Report Type: 
  Country: None (occurrence: None)
  Receive Date: 20100325
  Receipt Date: 20100309
  Transmission Date: 20100710
  Serious: Yes (Disabling)
  Sender: FDA-Public Use
  Company Number: 2010AL001440

PATIENT
  Sex: Female

DRUGS (1)
  1. METOCLOPRAMIDE [Suspect]
     Indication: DYSPEPSIA
     Dosage: 40 MG; QD; PO
     Route: 048
     Dates: start: 20081001, end: 20090101

REACTIONS (16)
  - ACTIVITIES OF DAILY LIVING IMPAIRED [None]
  - DEFORMITY [None]
  - DEPRESSION [None]
  - DISCOMFORT [None]
  - DYSPHAGIA [None]
  - ECONOMIC PROBLEM [None]
  - EXTRAPYRAMIDAL DISORDER [None]
  - FEELING ABNORMAL [None]
  - MULTIPLE INJURIES [None]
  - NERVOUS SYSTEM DISORDER [None]
  - PAIN [None]
  - QUALITY OF LIFE DECREASED [None]
  - SPEECH DISORDER [None]
  - TARDIVE DYSKINESIA [None]
  - TREMOR [None]
  - UNEVALUABLE EVENT [None]
